FAERS Safety Report 21081831 (Version 3)
Quarter: 2022Q3

REPORT INFORMATION
  Report Type: Spontaneous
  Country: US (occurrence: US)
  Receive Date: 20220714
  Receipt Date: 20220809
  Transmission Date: 20221027
  Serious: Yes (Other)
  Sender: FDA-Public Use
  Company Number: US-GLAXOSMITHKLINE-US2022AMR105023

PATIENT

DRUGS (3)
  1. ZEJULA [Suspect]
     Active Substance: NIRAPARIB
     Indication: Ovarian cancer
     Dosage: 100 MG
  2. ZEJULA [Suspect]
     Active Substance: NIRAPARIB
     Dosage: 200 MG, QD
     Route: 048
     Dates: start: 20220623
  3. MAGNESIUM [Suspect]
     Active Substance: MAGNESIUM
     Indication: Product used for unknown indication
     Dosage: UNK

REACTIONS (15)
  - Pulmonary oedema [Unknown]
  - Ascites [Unknown]
  - Blood potassium abnormal [Unknown]
  - Decreased appetite [Not Recovered/Not Resolved]
  - Fatigue [Unknown]
  - Vomiting [Not Recovered/Not Resolved]
  - Ageusia [Unknown]
  - Weight decreased [Unknown]
  - Condition aggravated [Unknown]
  - Asthenia [Unknown]
  - Abdominal discomfort [Unknown]
  - Somnolence [Unknown]
  - Nervousness [Unknown]
  - Illness [Unknown]
  - Product dose omission in error [Unknown]
